FAERS Safety Report 5018349-0 (Version None)
Quarter: 2006Q2

REPORT INFORMATION
  Report Type: 
  Country: None (occurrence: None)
  Receive Date: 20060530
  Receipt Date: 20060519
  Transmission Date: 20061013
  Serious: Yes (Hospitalization, Other)
  Sender: FDA-Public Use
  Company Number: 2006050359

PATIENT
  Age: 50 Year
  Sex: Female
  Weight: 55.5 kg

DRUGS (5)
  1. ATARAX [Suspect]
     Indication: PREOPERATIVE CARE
     Dosage: 50 MG (50 MG, 1 IN 1 D), INTRAMUSCULAR
     Route: 030
     Dates: start: 20060405, end: 20060405
  2. ATROPINE [Suspect]
     Indication: PREOPERATIVE CARE
     Dosage: 0.5 MG (0.5 MG, 1 IN 1 D), INTRAMUSCULAR
     Dates: start: 20060405, end: 20060405
  3. TALION (BEPOTASTINE BESILATE) [Concomitant]
  4. RIZABEN (TRANILAST) [Concomitant]
  5. ALL OTHER THERAPEUTIC PRODUCTS (ALL OTHER THERAPEUTIC PRODUCTS) [Concomitant]

REACTIONS (3)
  - INJECTION SITE NECROSIS [None]
  - INJECTION SITE PAIN [None]
  - INJECTION SITE ULCER [None]
